FAERS Safety Report 8875178 (Version 1)
Quarter: 2012Q4

REPORT INFORMATION
  Report Type: 
  Country: US (occurrence: US)
  Receive Date: 20121029
  Receipt Date: 20121029
  Transmission Date: 20130627
  Serious: No
  Sender: FDA-Public Use
  Company Number: US-PFIZER INC-2012269301

PATIENT
  Age: 71 Year
  Sex: Female
  Weight: 83.9 kg

DRUGS (15)
  1. CHANTIX [Suspect]
     Indication: SMOKING CESSATION THERAPY
     Dosage: 0.5 mg, 1x/day
     Route: 048
     Dates: start: 2009, end: 2009
  2. CHANTIX [Suspect]
     Dosage: 0.5 mg, 1x/day
     Route: 048
     Dates: start: 20121006, end: 201210
  3. CHANTIX [Suspect]
     Dosage: 1 mg, 2x/day
     Route: 048
     Dates: start: 201210, end: 201210
  4. CHANTIX [Suspect]
     Dosage: 0.5 mg, 2x/day
     Route: 048
     Dates: start: 201210
  5. PRAVASTATIN [Concomitant]
     Dosage: 80 mg, UNK
  6. HYDROCHLOROTHIAZIDE [Concomitant]
     Dosage: 25 mg, 1x/day
  7. CYMBALTA [Concomitant]
     Dosage: 60 mg, 1x/day
  8. LISINOPRIL [Concomitant]
     Dosage: 10 mg, UNK
  9. TRILIPIX [Concomitant]
     Dosage: 135 mg, 1x/day
  10. ALENDRONATE SODIUM [Concomitant]
     Dosage: 70 mg, weekly
  11. FERROUS SULFATE [Concomitant]
     Dosage: UNK, every alternate day
  12. FOLIC ACID [Concomitant]
     Dosage: 1 mg, 1x/day
  13. METHOTREXATE [Concomitant]
     Dosage: 2.5 mg, five in a week
  14. CALCIUM PLUS VITAMIN D [Concomitant]
     Dosage: 600 mg, UNK
  15. VITAMIN D3 [Concomitant]
     Dosage: 400 IU, 1x/day

REACTIONS (2)
  - Vomiting [Recovered/Resolved]
  - Nausea [Recovered/Resolved]
